FAERS Safety Report 4592980-9 (Version None)
Quarter: 2005Q1

REPORT INFORMATION
  Report Type: 
  Country: None (occurrence: None)
  Receive Date: 20050228
  Receipt Date: 20041208
  Transmission Date: 20050727
  Serious: Yes (Other)
  Sender: FDA-Public Use
  Company Number: US-BRISTOL-MYERS SQUIBB COMPANY-12789004

PATIENT
  Age: 74 Year
  Sex: Male

DRUGS (3)
  1. ERBITUX [Suspect]
     Indication: COLORECTAL CANCER METASTATIC
     Route: 042
     Dates: start: 20040511
  2. CLINDAMYCIN [Concomitant]
     Route: 061
  3. DOXYCYCLINE [Concomitant]

REACTIONS (2)
  - DRUG EFFECT DECREASED [None]
  - SKIN INFECTION [None]
